FAERS Safety Report 6496269-2 (Version None)
Quarter: 2009Q4

REPORT INFORMATION
  Report Type: 
  Country: None (occurrence: None)
  Receive Date: 20091214
  Receipt Date: 20090818
  Transmission Date: 20100525
  Serious: No
  Sender: FDA-Public Use
  Company Number: US-BRISTOL-MYERS SQUIBB COMPANY-14745947

PATIENT
  Age: 59 Year
  Sex: Female

DRUGS (8)
  1. ABILIFY [Suspect]
     Indication: MAJOR DEPRESSION
     Dosage: INITIATED AT 2 MG, THEN INCREASED TO 5MG
     Dates: start: 20090101, end: 20090101
  2. CYMBALTA [Suspect]
     Indication: MAJOR DEPRESSION
     Dates: end: 20090101
  3. AMBIEN [Concomitant]
  4. ATENOLOL [Concomitant]
  5. KLONOPIN [Concomitant]
  6. LISINOPRIL [Concomitant]
  7. NEURONTIN [Concomitant]
  8. ZOCOR [Concomitant]

REACTIONS (1)
  - MUSCULOSKELETAL STIFFNESS [None]
